FAERS Safety Report 8909413 (Version 1)
Quarter: 2012Q4

REPORT INFORMATION
  Report Type: 
  Country: AT (occurrence: AT)
  Receive Date: 20121115
  Receipt Date: 20121115
  Transmission Date: 20130627
  Serious: Yes (Hospitalization)
  Sender: FDA-Public Use
  Company Number: AT-SANOFI-AVENTIS-2012SA081813

PATIENT
  Age: 26 Year
  Sex: Male
  Weight: 115 kg

DRUGS (1)
  1. FUROSEMIDE [Suspect]
     Indication: INTENTIONAL DRUG MISUSE
     Dosage: received 2 x 80 mg of furosemide orally 24 and 48 hours before a competition
     Route: 048
     Dates: start: 201105, end: 201105

REACTIONS (15)
  - Hypokalaemia [Recovered/Resolved]
  - Intentional drug misuse [Unknown]
  - Palpitations [Recovered/Resolved]
  - Sinus tachycardia [Recovered/Resolved]
  - Electrocardiogram U-wave abnormality [Recovered/Resolved]
  - Paralysis [Recovered/Resolved]
  - Hyperlactacidaemia [Recovered/Resolved]
  - Troponin T increased [Recovered/Resolved]
  - Blood creatine phosphokinase increased [Recovered/Resolved]
  - Blood lactate dehydrogenase increased [Recovered/Resolved]
  - Blood phosphorus decreased [Recovered/Resolved]
  - Muscle hypertrophy [Recovered/Resolved]
  - Mobility decreased [Recovered/Resolved]
  - Muscle spasms [Recovered/Resolved]
  - Weight decreased [Unknown]
